FAERS Safety Report 9201714 (Version 1)
Quarter: 2013Q2

REPORT INFORMATION
  Report Type: Spontaneous
  Country: US (occurrence: US)
  Receive Date: 20130401
  Receipt Date: 20130401
  Transmission Date: 20140414
  Serious: No
  Sender: FDA-Public Use
  Company Number: US-PFIZER INC-2013102102

PATIENT
  Age: 61 Year
  Sex: Female
  Weight: 48.53 kg

DRUGS (1)
  1. ADVIL [Suspect]
     Indication: MUSCULOSKELETAL PAIN
     Dosage: 200 MG, 2X/DAY
     Route: 048
     Dates: start: 20130325

REACTIONS (1)
  - Rash erythematous [Not Recovered/Not Resolved]
